FAERS Safety Report 6761958-9 (Version None)
Quarter: 2010Q2

REPORT INFORMATION
  Report Type: 
  Country: None (occurrence: None)
  Receive Date: 20100607
  Receipt Date: 20100519
  Transmission Date: 20101027
  Serious: Yes (Hospitalization)
  Sender: FDA-Public Use
  Company Number: 1-22676531

PATIENT
  Age: 78 Year
  Sex: Male
  Weight: 99.7913 kg

DRUGS (9)
  1. WARFARIN SODIUM           TABLETS USP 7.5 MG [Suspect]
     Indication: CARDIAC VALVE PROSTHESIS USER
     Dosage: 1 TAB 6X/WK; 0.5 TAB 1X/WK, ORAL
     Route: 048
     Dates: start: 19930101
  2. DIOVAN [Concomitant]
  3. TAGAMET [Concomitant]
  4. INDERAL [Concomitant]
  5. PERSANTINE [Concomitant]
  6. LANOXIN [Concomitant]
  7. LASIX [Concomitant]
  8. KLOR-CON [Concomitant]
  9. VYTORIN [Concomitant]

REACTIONS (2)
  - INTERNATIONAL NORMALISED RATIO DECREASED [None]
  - PRODUCT QUALITY ISSUE [None]
